FAERS Safety Report 16060693 (Version 1)
Quarter: 2019Q1

REPORT INFORMATION
  Report Type: Spontaneous
  Country: FR (occurrence: FR)
  Receive Date: 20190312
  Receipt Date: 20190312
  Transmission Date: 20190418
  Serious: Yes (Hospitalization, Other)
  Sender: FDA-Public Use
  Company Number: FR-CPL-000933

PATIENT
  Age: 60 Year
  Sex: Male

DRUGS (1)
  1. VENLAFAXINE/VENLAFAXINE HYDROCHLORIDE [Suspect]
     Active Substance: VENLAFAXINE HYDROCHLORIDE
     Route: 048

REACTIONS (5)
  - Acute kidney injury [Unknown]
  - Drug abuse [Unknown]
  - Hallucination [Unknown]
  - Rhabdomyolysis [Unknown]
  - Aggression [Unknown]
